FAERS Safety Report 7622559-3 (Version None)
Quarter: 2011Q3

REPORT INFORMATION
  Report Type: 
  Country: None (occurrence: None)
  Receive Date: 20110712
  Receipt Date: 20110627
  Transmission Date: 20111222
  Serious: Yes (Hospitalization)
  Sender: FDA-Public Use
  Company Number: TCI2011A03735

PATIENT
  Sex: Male

DRUGS (3)
  1. MICOMBI BP (HYDROCHLOROTHIAZIDE, TELMISARTAN) [Concomitant]
  2. GLACTIV (SITAGLIPTIN PHOSPHATE) [Concomitant]
  3. ACTOS [Suspect]
     Indication: DIABETES MELLITUS
     Dosage: 30 MG (30 MG, 1 D) PER ORAL
     Route: 048
     Dates: start: 20090801, end: 20100801

REACTIONS (2)
  - BLADDER CANCER [None]
  - PROSTATE CANCER [None]
